FAERS Safety Report 12863674 (Version 2)
Quarter: 2016Q4

REPORT INFORMATION
  Report Type: Spontaneous
  Country: JP (occurrence: JP)
  Receive Date: 20161019
  Receipt Date: 20161122
  Transmission Date: 20170207
  Serious: Yes (Death)
  Sender: FDA-Public Use
  Company Number: JP-ELI_LILLY_AND_COMPANY-JP201610005013

PATIENT
  Age: 65 Year
  Sex: Female

DRUGS (3)
  1. TRULICITY [Suspect]
     Active Substance: DULAGLUTIDE
     Indication: TYPE 2 DIABETES MELLITUS
     Dosage: 0.75 MG, UNK
     Route: 058
     Dates: start: 20160208, end: 20160208
  2. PREDNISOLONE. [Concomitant]
     Active Substance: PREDNISOLONE
     Indication: MICROSCOPIC POLYANGIITIS
  3. PREDNISOLONE. [Concomitant]
     Active Substance: PREDNISOLONE
     Indication: INTERSTITIAL LUNG DISEASE

REACTIONS (3)
  - Decreased appetite [Unknown]
  - Hepatic failure [Fatal]
  - Microscopic polyangiitis [Unknown]

NARRATIVE: CASE EVENT DATE: 201602
